FAERS Safety Report 16209049 (Version 2)
Quarter: 2019Q2

REPORT INFORMATION
  Report Type: Spontaneous
  Country: DE (occurrence: DE)
  Receive Date: 20190417
  Receipt Date: 20190501
  Transmission Date: 20190711
  Serious: Yes (Other)
  Sender: FDA-Public Use
  Company Number: DE-AMGEN-DEUSP2019042724

PATIENT
  Age: 61 Year
  Sex: Male
  Weight: 77 kg

DRUGS (5)
  1. METOPROLOL. [Concomitant]
     Active Substance: METOPROLOL
     Indication: HEART DISEASE CONGENITAL
     Dosage: 50 MILLIGRAM, QD
     Dates: start: 2016
  2. ASA [Concomitant]
     Active Substance: ASPIRIN
     Indication: HEART DISEASE CONGENITAL
     Dosage: 100 MILLIGRAM, QD
     Dates: start: 2016
  3. PANTOPRAZOLE [Concomitant]
     Active Substance: PANTOPRAZOLE
     Indication: GASTRIC DISORDER
     Dosage: 20 MILLIGRAM, QD
     Dates: start: 2016
  4. PARSABIV [Suspect]
     Active Substance: ETELCALCETIDE HYDROCHLORIDE
     Indication: HYPERPARATHYROIDISM SECONDARY
     Dosage: 2.5 MILLIGRAM, 3 TIMES/WK
     Route: 042
     Dates: start: 20181127, end: 20181207
  5. PARSABIV [Suspect]
     Active Substance: ETELCALCETIDE HYDROCHLORIDE
     Dosage: 2.5 MILLIGRAM, 3 TIMES/WK
     Route: 042
     Dates: start: 20190109

REACTIONS (7)
  - Underdose [Unknown]
  - Diarrhoea [Recovered/Resolved]
  - Hypotension [Unknown]
  - Abdominal pain [Recovered/Resolved]
  - Malaise [Recovered/Resolved]
  - Dizziness [Unknown]
  - Gastrointestinal pain [Recovered/Resolved]

NARRATIVE: CASE EVENT DATE: 20181127
